FAERS Safety Report 8199326-8 (Version None)
Quarter: 2012Q1

REPORT INFORMATION
  Report Type: 
  Country: None (occurrence: None)
  Receive Date: 20120309
  Receipt Date: 20120228
  Transmission Date: 20120608
  Serious: Yes (Hospitalization, Other)
  Sender: FDA-Public Use
  Company Number: BR-NOVOPROD-346129

PATIENT
  Age: 32 Year
  Sex: Female
  Weight: 66 kg

DRUGS (6)
  1. SERTRALINE HYDROCHLORIDE [Concomitant]
     Indication: ANXIETY
     Dosage: 1 TAB, QD
     Route: 048
     Dates: start: 20020228, end: 20120226
  2. VICTOZA [Suspect]
     Indication: TYPE 2 DIABETES MELLITUS
     Dosage: 0.6 MG, QD
     Route: 058
     Dates: start: 20110826, end: 20120226
  3. PANTOPRAZOLE [Concomitant]
  4. DULCOLAX [Concomitant]
     Indication: CONSTIPATION
  5. MANNITOL [Concomitant]
     Indication: CONSTIPATION
  6. ATENOLOL [Concomitant]
     Indication: HYPERTENSION
     Dosage: 1 TABLET / ORAL
     Dates: start: 20090228

REACTIONS (5)
  - CONSTIPATION [None]
  - HIATUS HERNIA [None]
  - NAUSEA [None]
  - MATERNAL EXPOSURE DURING PREGNANCY [None]
  - MALAISE [None]
